FAERS Safety Report 9228295 (Version 1)
Quarter: 2013Q2

REPORT INFORMATION
  Report Type: Spontaneous
  Country: US (occurrence: US)
  Receive Date: 20130412
  Receipt Date: 20130412
  Transmission Date: 20140414
  Serious: Yes (Other)
  Sender: FDA-Public Use
  Company Number: US-PFIZER INC-2013112901

PATIENT
  Age: 50 Year
  Sex: Male
  Weight: 96.6 kg

DRUGS (4)
  1. VIAGRA [Suspect]
     Indication: PREMATURE EJACULATION
     Dosage: 100 MG, AS NEEDED
     Route: 048
  2. VIAGRA [Suspect]
     Dosage: 100 MG, 3X/WEEK
     Route: 048
  3. TYLENOL [Concomitant]
     Dosage: UNK, AS NEEDED
  4. IBUPROFEN [Concomitant]
     Dosage: UNK, AS NEEDED

REACTIONS (8)
  - Prostate cancer [Unknown]
  - Neuralgia [Unknown]
  - Pain [Unknown]
  - Weight decreased [Unknown]
  - Blood glucose increased [Unknown]
  - Blood cholesterol increased [Unknown]
  - Off label use [Unknown]
  - Drug ineffective for unapproved indication [Unknown]
